FAERS Safety Report 4833337-2 (Version None)
Quarter: 2005Q4

REPORT INFORMATION
  Report Type: 
  Country: None (occurrence: None)
  Receive Date: 20051117
  Receipt Date: 20051106
  Transmission Date: 20060501
  Serious: Yes (Other)
  Sender: FDA-Public Use
  Company Number: 2005148250

PATIENT

DRUGS (1)
  1. UNASYN [Suspect]
     Indication: INFECTION PROPHYLAXIS
     Dosage: 3 GRAM, INTRAVENOUS
     Route: 042

REACTIONS (3)
  - HAEMORRHAGE [None]
  - INJURY [None]
  - SURGERY [None]
